FAERS Safety Report 5894309-2 (Version None)
Quarter: 2008Q3

REPORT INFORMATION
  Report Type: 
  Country: None (occurrence: None)
  Receive Date: 20080923
  Receipt Date: 20080422
  Transmission Date: 20090109
  Serious: No
  Sender: FDA-Public Use
  Company Number: US-ASTRAZENECA-2008UW08188

PATIENT

DRUGS (1)
  1. SEROQUEL [Suspect]
     Dosage: DOSES ABOVE 800MG
     Route: 048

REACTIONS (3)
  - AGITATION [None]
  - HYPERVIGILANCE [None]
  - SOMNOLENCE [None]
